FAERS Safety Report 22068112 (Version 1)
Quarter: 2023Q1

REPORT INFORMATION
  Report Type: Report from Study
  Country: US (occurrence: None)
  Receive Date: 20230307
  Receipt Date: 20230307
  Transmission Date: 20230417
  Serious: Yes (Hospitalization)
  Sender: FDA-Public Use
  Company Number: 2023A051899

PATIENT
  Age: 21732 Day
  Sex: Female

DRUGS (1)
  1. TAGRISSO [Suspect]
     Active Substance: OSIMERTINIB
     Indication: Lung carcinoma cell type unspecified stage 0
     Route: 048
     Dates: start: 202206

REACTIONS (4)
  - Oral herpes [Unknown]
  - Diarrhoea [Unknown]
  - Nail discolouration [Unknown]
  - Product dose omission in error [Unknown]
